FAERS Safety Report 24271195 (Version 1)
Quarter: 2024Q3

REPORT INFORMATION
  Report Type: Spontaneous
  Country: US (occurrence: US)
  Receive Date: 20240831
  Receipt Date: 20240831
  Transmission Date: 20241017
  Serious: No
  Sender: BRISTOL MYERS SQUIBB
  Company Number: US-BRISTOL-MYERS SQUIBB COMPANY-2024-130389

PATIENT
  Age: 74 Year
  Sex: Male
  Weight: 106.59 kg

DRUGS (5)
  1. ELIQUIS [Suspect]
     Active Substance: APIXABAN
     Indication: Deep vein thrombosis
     Dosage: 5 MG TAKEN TWICE IN THE MORNING AND TWICE AT NIGHT FOR THE ONE DAY
     Route: 048
  2. ELIQUIS [Suspect]
     Active Substance: APIXABAN
     Indication: Pulmonary embolism
     Dosage: ONE TABLET TWICE DAILY
     Route: 048
  3. LAMICTAL [Concomitant]
     Active Substance: LAMOTRIGINE
     Indication: Product used for unknown indication
  4. WARFARIN [Concomitant]
     Active Substance: WARFARIN
     Indication: Thrombosis
  5. WARFARIN [Concomitant]
     Active Substance: WARFARIN
     Indication: Pulmonary thrombosis

REACTIONS (2)
  - Gout [Unknown]
  - Prescribed underdose [Unknown]
